FAERS Safety Report 23980344 (Version 3)
Quarter: 2024Q3

REPORT INFORMATION
  Report Type: Report from Study
  Country: CH (occurrence: CH)
  Receive Date: 20240617
  Receipt Date: 20240801
  Transmission Date: 20241017
  Serious: Yes (Hospitalization)
  Sender: ABBVIE
  Company Number: CH-ABBVIE-5800819

PATIENT
  Sex: Male

DRUGS (4)
  1. CARBIDOPA\LEVODOPA [Suspect]
     Active Substance: CARBIDOPA\LEVODOPA
     Indication: Parkinson^s disease
     Dosage: LAST ADMIN DATE: 2022/03
     Route: 050
     Dates: start: 20220301
  2. CARBIDOPA\LEVODOPA [Suspect]
     Active Substance: CARBIDOPA\LEVODOPA
     Dosage: MD: 10.0 ML, CRD: 5.3 ML/H, ED: 1.5 ML?FREQUENCY TEXT: 16H THERAPY
     Route: 050
     Dates: start: 20220307
  3. CARBIDOPA\LEVODOPA [Suspect]
     Active Substance: CARBIDOPA\LEVODOPA
     Dosage: MD: 10.0 ML, CRD: 5.3 ML/H, ED: 1.5 ML ?FREQUENCY TEXT: 16H THERAPY
     Route: 050
  4. BENSERAZIDE HYDROCHLORIDE\LEVODOPA [Concomitant]
     Active Substance: BENSERAZIDE HYDROCHLORIDE\LEVODOPA
     Indication: Product used for unknown indication
     Route: 050

REACTIONS (10)
  - Haemoglobin increased [Not Recovered/Not Resolved]
  - Pneumonia [Unknown]
  - Device issue [Unknown]
  - Therapeutic product effect decreased [Not Recovered/Not Resolved]
  - Hospitalisation [Recovered/Resolved]
  - Dysphagia [Not Recovered/Not Resolved]
  - Off label use [Not Recovered/Not Resolved]
  - Enteral nutrition [Not Recovered/Not Resolved]
  - Incorrect route of product administration [Not Recovered/Not Resolved]
  - Device connection issue [Not Recovered/Not Resolved]

NARRATIVE: CASE EVENT DATE: 20240101
